FAERS Safety Report 15941174 (Version 6)
Quarter: 2019Q4

REPORT INFORMATION
  Report Type: Spontaneous
  Country: US (occurrence: US)
  Receive Date: 20190208
  Receipt Date: 20191210
  Transmission Date: 20200122
  Serious: Yes (Hospitalization, Disabling, Other)
  Sender: FDA-Public Use
  Company Number: US-ASTRAZENECA-2018SF21176

PATIENT
  Age: 518 Month
  Sex: Male
  Weight: 83.9 kg

DRUGS (42)
  1. AMIDRINE [Concomitant]
  2. GABAPENTIN. [Concomitant]
     Active Substance: GABAPENTIN
  3. ZOFRAN [Concomitant]
     Active Substance: ONDANSETRON HYDROCHLORIDE
  4. LACTULOSE. [Concomitant]
     Active Substance: LACTULOSE
  5. PREVACID [Suspect]
     Active Substance: LANSOPRAZOLE
     Route: 065
  6. PROTONIX [Suspect]
     Active Substance: PANTOPRAZOLE SODIUM
     Indication: GASTROOESOPHAGEAL REFLUX DISEASE
     Route: 065
     Dates: start: 2000, end: 20170719
  7. HYDROMORPHONE [Concomitant]
     Active Substance: HYDROMORPHONE
     Indication: PAIN
     Dates: start: 200611, end: 201810
  8. DULCOLAX NOS [Concomitant]
     Active Substance: BISACODYL OR DOCUSATE SODIUM
  9. MYLANTA [Concomitant]
     Active Substance: ALUMINUM HYDROXIDE\DIMETHICONE\MAGNESIUM HYDROXIDE
  10. CARAFATE [Concomitant]
     Active Substance: SUCRALFATE
  11. RIZATRIPTAN. [Concomitant]
     Active Substance: RIZATRIPTAN
  12. PREDNISONE. [Concomitant]
     Active Substance: PREDNISONE
  13. MILK OF MAGNESIA [Concomitant]
     Active Substance: MAGNESIUM HYDROXIDE
  14. AMITRIPTYLINE [Concomitant]
     Active Substance: AMITRIPTYLINE
  15. ONDANSETRON [Concomitant]
     Active Substance: ONDANSETRON
     Indication: NAUSEA
     Dates: start: 2017
  16. PRILOSEC [Suspect]
     Active Substance: OMEPRAZOLE MAGNESIUM
     Indication: GASTROOESOPHAGEAL REFLUX DISEASE
     Route: 048
     Dates: start: 19920601, end: 20170719
  17. ATIVAN [Concomitant]
     Active Substance: LORAZEPAM
     Indication: SLEEP DISORDER
     Dates: start: 201710, end: 201811
  18. NARCAN [Concomitant]
     Active Substance: NALOXONE HYDROCHLORIDE
  19. COLACE [Concomitant]
     Active Substance: DOCUSATE SODIUM
  20. PANGESTYME [Concomitant]
  21. PRILOSEC [Suspect]
     Active Substance: OMEPRAZOLE MAGNESIUM
     Indication: GASTROOESOPHAGEAL REFLUX DISEASE
     Dosage: GENERIC
     Route: 065
     Dates: start: 200806, end: 201611
  22. DOLOPHINE [Concomitant]
     Active Substance: METHADONE HYDROCHLORIDE
  23. KLOR-CON [Concomitant]
     Active Substance: POTASSIUM CHLORIDE
  24. TEMAZEPAM. [Concomitant]
     Active Substance: TEMAZEPAM
  25. PEPCID [Concomitant]
     Active Substance: FAMOTIDINE
  26. HEPARIN [Concomitant]
     Active Substance: HEPARIN SODIUM
  27. ENOXAPARIN [Concomitant]
     Active Substance: ENOXAPARIN
  28. IBUPROFEN. [Concomitant]
     Active Substance: IBUPROFEN
     Indication: PYREXIA
  29. CEPHALEXIN. [Concomitant]
     Active Substance: CEPHALEXIN
     Indication: INFECTION
     Dates: start: 2018
  30. DIPHENHYDRAMINE. [Concomitant]
     Active Substance: DIPHENHYDRAMINE
  31. SENOKOT [Concomitant]
     Active Substance: SENNOSIDES
  32. DIFLUCAN [Concomitant]
     Active Substance: FLUCONAZOLE
  33. NORCO [Concomitant]
     Active Substance: ACETAMINOPHEN\HYDROCODONE BITARTRATE
  34. XIFAXAN [Concomitant]
     Active Substance: RIFAXIMIN
  35. METHADONE [Concomitant]
     Active Substance: METHADONE HYDROCHLORIDE
  36. IBUPROFEN. [Concomitant]
     Active Substance: IBUPROFEN
     Indication: PAIN
  37. PROMETHAZINE [Concomitant]
     Active Substance: PROMETHAZINE HYDROCHLORIDE
  38. TYLENOL [Concomitant]
     Active Substance: ACETAMINOPHEN
  39. REGLAN [Concomitant]
     Active Substance: METOCLOPRAMIDE HYDROCHLORIDE
  40. LEVSIN [Concomitant]
     Active Substance: HYOSCYAMINE SULFATE
  41. XANAX [Concomitant]
     Active Substance: ALPRAZOLAM
  42. CIMETIDINE [Concomitant]
     Active Substance: CIMETIDINE

REACTIONS (4)
  - Renal failure [Unknown]
  - Renal injury [Unknown]
  - Acute kidney injury [Not Recovered/Not Resolved]
  - Chronic kidney disease [Not Recovered/Not Resolved]

NARRATIVE: CASE EVENT DATE: 201112
